FAERS Safety Report 16197812 (Version 1)
Quarter: 2019Q2

REPORT INFORMATION
  Report Type: Spontaneous
  Country: US (occurrence: US)
  Receive Date: 20190414
  Receipt Date: 20190414
  Transmission Date: 20190711
  Serious: Yes (Other)
  Sender: FDA-Public Use
  Company Number: None

PATIENT
  Age: 37 Year
  Sex: Female
  Weight: 90 kg

DRUGS (1)
  1. MIRENA [Suspect]
     Active Substance: LEVONORGESTREL
     Indication: ENDOMETRIAL CANCER
     Route: 067
     Dates: start: 20180618, end: 20190218

REACTIONS (4)
  - Depression [None]
  - Panic attack [None]
  - Palpitations [None]
  - Night sweats [None]

NARRATIVE: CASE EVENT DATE: 20180701
